FAERS Safety Report 7502546-6 (Version None)
Quarter: 2011Q2

REPORT INFORMATION
  Report Type: 
  Country: None (occurrence: None)
  Receive Date: 20110525
  Receipt Date: 20100903
  Transmission Date: 20111010
  Serious: No
  Sender: FDA-Public Use
  Company Number: US-MYLANLABS-2010S1016442

PATIENT
  Age: 69 Year
  Sex: Female

DRUGS (5)
  1. ACYCLOVIR [Suspect]
     Route: 048
     Dates: start: 20100901, end: 20100901
  2. ACYCLOVIR [Suspect]
     Route: 048
     Dates: start: 20100902, end: 20100902
  3. CALCIUM CARBONATE [Concomitant]
  4. ACYCLOVIR [Suspect]
     Indication: ORAL HERPES
     Route: 048
     Dates: start: 20100831, end: 20100831
  5. CENTRUM SILVER [Concomitant]

REACTIONS (1)
  - INSOMNIA [None]
